FAERS Safety Report 20767353 (Version 1)
Quarter: 2022Q2

REPORT INFORMATION
  Report Type: Report from Study
  Country: CA (occurrence: CA)
  Receive Date: 20220429
  Receipt Date: 20220429
  Transmission Date: 20220721
  Serious: Yes (Other)
  Sender: FDA-Public Use
  Company Number: CA-JNJFOC-20220312962

PATIENT
  Age: 20 Year
  Sex: Male
  Weight: 51 kg

DRUGS (3)
  1. REMICADE [Suspect]
     Active Substance: INFLIXIMAB
     Indication: Crohn^s disease
     Dosage: ON 03-MAR-2022, THE PATIENT RECEIVED 60TH INFLIXIMAB INFUSION FOR DOSE OF 500 MG AND PARTIAL HARVEY-
     Route: 042
     Dates: start: 20160928
  2. REMICADE [Suspect]
     Active Substance: INFLIXIMAB
     Route: 042
  3. REMICADE [Suspect]
     Active Substance: INFLIXIMAB
     Route: 042

REACTIONS (6)
  - Crohn^s disease [Unknown]
  - COVID-19 [Unknown]
  - Inappropriate schedule of product administration [Unknown]
  - Glucose tolerance impaired [Unknown]
  - Diarrhoea [Unknown]
  - Frequent bowel movements [Unknown]

NARRATIVE: CASE EVENT DATE: 20220301
